FAERS Safety Report 11771205 (Version 1)
Quarter: 2015Q4

REPORT INFORMATION
  Report Type: Not Available
  Country: FR (occurrence: FR)
  Receive Date: 20151124
  Receipt Date: 20151124
  Transmission Date: 20160304
  Serious: Yes (Other)
  Sender: FDA-Public Use
  Company Number: FR-BEH-2015055955

PATIENT
  Age: 78 Year
  Sex: Male

DRUGS (7)
  1. PRIVIGEN [Suspect]
     Active Substance: HUMAN IMMUNOGLOBULIN G
     Indication: AMYOTROPHIC LATERAL SCLEROSIS
     Dosage: 5 VIALS OF 10 G
     Route: 042
     Dates: start: 20150910, end: 20150914
  2. DEBRIDAT [Suspect]
     Active Substance: TRIMEBUTINE MALEATE
     Dosage: START DATE: ??-SEP-2015; STOP DATE: ??-OCT-2015
  3. QUESTRAN [Concomitant]
     Active Substance: CHOLESTYRAMINE
  4. PRIVIGEN [Suspect]
     Active Substance: HUMAN IMMUNOGLOBULIN G
     Indication: AXONAL NEUROPATHY
     Dosage: 5 VIALS OF 20 G
     Route: 042
     Dates: start: 20150910, end: 20150914
  5. RIVOTRIL [Concomitant]
     Active Substance: CLONAZEPAM
  6. VITAMIN A [Concomitant]
     Active Substance: VITAMIN A
  7. STRESAM [Concomitant]
     Active Substance: ETIFOXINE

REACTIONS (4)
  - Pruritus [Not Recovered/Not Resolved]
  - Skin lesion [Unknown]
  - Eosinophilia [Unknown]
  - Rash maculo-papular [Not Recovered/Not Resolved]

NARRATIVE: CASE EVENT DATE: 2015
